FAERS Safety Report 8170762-9 (Version None)
Quarter: 2012Q1

REPORT INFORMATION
  Report Type: 
  Country: None (occurrence: None)
  Receive Date: 20120104
  Receipt Date: 20111109
  Transmission Date: 20120608
  Serious: No
  Sender: FDA-Public Use
  Company Number: 2011HGS-002764

PATIENT
  Age: 55 Year
  Sex: Female
  Weight: 77.1115 kg

DRUGS (26)
  1. ASPIRIN [Concomitant]
  2. CRESTOR [Concomitant]
  3. CARBAMAZEPINE [Concomitant]
  4. POTASSIUM (POTASSIUM) (POTASSIUM) [Concomitant]
  5. GLUCOSAMINE/CHONDROITIN (GLUCOSAMINE W/CHONDROITIN) (GLUCOSAMINE CHOND [Concomitant]
  6. MULTIVITAMIN (MULTIVITAMINS) (ERGOCALCIFEROL, ASCORBIC ACID, FOLIC ACI [Concomitant]
  7. PERCOCET (OXYCOCET) (PARACETAMOL, OXYCODONE HYDROCHLORIDE) [Concomitant]
  8. DEXILANT (PROTON PUMP INHIBITORS) (DEXLANSOPRAZOLE) [Concomitant]
  9. BENLYSTA [Suspect]
     Dosage: 10 MG/KG, 1 IN 28 D, INTRAVENOUS DRIP
     Route: 041
  10. VESICARE (URINARY ANTISPASMODICS) (SOLIFENACIN SUCCINATE) [Concomitant]
  11. BUPROPION XR (BUPROPION HYDROCHLORIDE) (BUPROPION HYDROCHLORIDE) [Concomitant]
  12. ALENDRONATE (ALENDRONATE SODIUM) (ALENDRONATE SODIUM) [Concomitant]
  13. CELLCEPT (MYCOPHENOLATE MOFETIL) (MYCOPHENOLATE MOFETIL) [Concomitant]
  14. ALDACTAZIDE (ALDACTAZIDE A) (SPIRONOLACTONE, HYDROCHLOROTHIAZIDE) [Concomitant]
  15. VITAMIN C (ASCORBIC ACID) (ASCORBIC ACID) [Concomitant]
  16. VITAMIN D (ERGOCALCIFEROL) (ERGOCALCIFEROL) [Concomitant]
  17. PREDNISONE [Concomitant]
  18. FLEXERIL (CYCLOBENZAPRINE HYDROCHLORIDE) (CYCLOBENZAPRINE HYDROCHLORID [Concomitant]
  19. IVIG (IMMUNOGLOBULINS) (IMMUNOGLOBULINS) [Concomitant]
  20. SYNTHROID (LEVOTHYROXINE SODIUM) (LEVOTHYROXINE SODIUM) [Concomitant]
  21. MS CONTIN (MORPHINE SULFATE) (MORPHINE SULFATE) [Concomitant]
  22. DILTIAZEM XR (DILTIAZEM HYDROCHLORIDE) (IDLTIAZEM HYDROCHLORIDE) [Concomitant]
  23. LISINOPRIL [Concomitant]
  24. LASIX [Concomitant]
  25. VITAMIN E (TOCOPHEROL) (TOCOPHEROL) [Concomitant]
  26. MESTINON (PYRIDOSTIGMINE BROMIDE) (PYRIDOSTIGMINE BROMIDE) [Concomitant]

REACTIONS (1)
  - URINARY TRACT INFECTION [None]
